FAERS Safety Report 4959646-4 (Version None)
Quarter: 2006Q1

REPORT INFORMATION
  Report Type: 
  Country: None (occurrence: None)
  Receive Date: 20060331
  Receipt Date: 20060323
  Transmission Date: 20060701
  Serious: Yes (Hospitalization)
  Sender: FDA-Public Use
  Company Number: US-ROCHE-441808

PATIENT
  Age: 61 Year
  Sex: Female

DRUGS (4)
  1. PEGASYS [Suspect]
     Dosage: MISSED ONE DOSE.
     Route: 065
  2. PEGASYS [Suspect]
     Route: 065
  3. COPEGUS [Suspect]
     Dosage: MISSED ONE WEEK THERAPY.
     Route: 065
  4. COPEGUS [Suspect]
     Route: 065

REACTIONS (10)
  - ASTHENIA [None]
  - COUGH [None]
  - DYSPNOEA [None]
  - FATIGUE [None]
  - LYMPHADENOPATHY [None]
  - PYREXIA [None]
  - RASH [None]
  - RENAL PAIN [None]
  - TREATMENT NONCOMPLIANCE [None]
  - WHITE BLOOD CELL COUNT DECREASED [None]
